FAERS Safety Report 14947114 (Version 1)
Quarter: 2018Q2

REPORT INFORMATION
  Report Type: Report from Study
  Country: DE (occurrence: DE)
  Receive Date: 20180529
  Receipt Date: 20180529
  Transmission Date: 20180711
  Serious: Yes (Hospitalization)
  Sender: FDA-Public Use
  Company Number: DE-EMD SERONO-9028599

PATIENT
  Age: 15 Year
  Sex: Male
  Weight: 62 kg

DRUGS (2)
  1. SAIZEN [Suspect]
     Active Substance: SOMATROPIN
     Indication: SMALL FOR DATES BABY
     Dosage: DOSE: 1 (UNSPECIFIED UNITS)
     Route: 058
     Dates: start: 201211
  2. SAIZEN [Suspect]
     Active Substance: SOMATROPIN
     Route: 058
     Dates: end: 20180123

REACTIONS (3)
  - Sensory loss [Recovered/Resolved]
  - Idiopathic intracranial hypertension [Unknown]
  - Aortic valve incompetence [Unknown]

NARRATIVE: CASE EVENT DATE: 20171101
